FAERS Safety Report 6941648-X (Version None)
Quarter: 2010Q3

REPORT INFORMATION
  Report Type: 
  Country: None (occurrence: None)
  Receive Date: 20100825
  Receipt Date: 20100816
  Transmission Date: 20110219
  Serious: Yes (Hospitalization)
  Sender: FDA-Public Use
  Company Number: US-JNJFOC-20100601385

PATIENT
  Sex: Female
  Weight: 52.89 kg

DRUGS (4)
  1. REMICADE [Suspect]
     Indication: INFLAMMATORY BOWEL DISEASE
     Route: 042
  2. REMICADE [Suspect]
     Route: 042
  3. AMITIZA [Concomitant]
  4. MIRALAX [Concomitant]

REACTIONS (4)
  - ABDOMINAL PAIN [None]
  - IRRITABLE BOWEL SYNDROME [None]
  - POSTURAL ORTHOSTATIC TACHYCARDIA SYNDROME [None]
  - VOMITING [None]
